FAERS Safety Report 7509670-2 (Version None)
Quarter: 2011Q2

REPORT INFORMATION
  Report Type: 
  Country: None (occurrence: None)
  Receive Date: 20110527
  Receipt Date: 20110526
  Transmission Date: 20111010
  Serious: Yes (Hospitalization)
  Sender: FDA-Public Use
  Company Number: FR-GILEAD-2011-0038879

PATIENT
  Sex: Male

DRUGS (5)
  1. EPIVIR [Suspect]
     Indication: HIV INFECTION
     Route: 048
     Dates: start: 19970108, end: 20090904
  2. ZERIT [Suspect]
     Indication: HIV INFECTION
     Route: 048
     Dates: start: 19970108, end: 20061128
  3. NORVIR [Suspect]
     Indication: HIV INFECTION
     Route: 048
     Dates: start: 20090904
  4. PREZISTA [Suspect]
     Indication: HIV INFECTION
     Route: 048
     Dates: start: 20090904
  5. TRUVADA [Suspect]
     Indication: HIV INFECTION
     Route: 048
     Dates: start: 20090904

REACTIONS (2)
  - MYOCARDIAL INFARCTION [None]
  - DYSLIPIDAEMIA [None]
